FAERS Safety Report 7302943-8 (Version None)
Quarter: 2011Q1

REPORT INFORMATION
  Report Type: 
  Country: None (occurrence: None)
  Receive Date: 20110218
  Receipt Date: 20110125
  Transmission Date: 20110831
  Serious: Yes (Other)
  Sender: FDA-Public Use
  Company Number: GR-ASTRAZENECA-2011SE04569

PATIENT
  Age: 36 Year
  Sex: Female
  Weight: 57 kg

DRUGS (10)
  1. PRILOSEC [Suspect]
     Indication: PROPHYLAXIS AGAINST GASTROINTESTINAL ULCER
     Route: 048
     Dates: start: 20100409, end: 20100419
  2. LOXITAN [Interacting]
     Indication: INTERVERTEBRAL DISC PROTRUSION
     Route: 048
     Dates: start: 20100410, end: 20100410
  3. GABITON [Interacting]
     Indication: INTERVERTEBRAL DISC PROTRUSION
     Route: 048
     Dates: start: 20100420, end: 20100425
  4. CELEBREX [Interacting]
     Indication: INTERVERTEBRAL DISC PROTRUSION
     Route: 048
     Dates: start: 20100413, end: 20100423
  5. CELESTONE SOLUSPAN [Interacting]
     Indication: INTERVERTEBRAL DISC PROTRUSION
     Dosage: 3+3 MG
     Route: 030
     Dates: start: 20100413, end: 20100423
  6. ROXITROL [Interacting]
     Indication: PROPHYLAXIS AGAINST GASTROINTESTINAL ULCER
     Route: 048
     Dates: start: 20100420, end: 20100425
  7. NORGESIC [Interacting]
     Indication: INTERVERTEBRAL DISC PROTRUSION
     Dosage: 450+35 MG EVERY 12 HOURS
     Route: 048
     Dates: start: 20100409, end: 20100411
  8. APOTEL PLUS [Interacting]
     Indication: INTERVERTEBRAL DISC PROTRUSION
     Dosage: 600+20 MG DAILY
     Route: 030
     Dates: start: 20100413, end: 20100423
  9. FELDENE [Interacting]
     Indication: INTERVERTEBRAL DISC PROTRUSION
     Route: 048
     Dates: start: 20100420, end: 20100425
  10. DYNASTAT [Interacting]
     Indication: INTERVERTEBRAL DISC PROTRUSION
     Route: 030
     Dates: start: 20100413, end: 20100423

REACTIONS (4)
  - DRUG INTERACTION [None]
  - DRUG EXPOSURE DURING PREGNANCY [None]
  - ABORTION SPONTANEOUS [None]
  - PREGNANCY [None]
